FAERS Safety Report 12209085 (Version 1)
Quarter: 2016Q1

REPORT INFORMATION
  Report Type: Spontaneous
  Country: US (occurrence: US)
  Receive Date: 20160324
  Receipt Date: 20160324
  Transmission Date: 20160526
  Serious: Yes (Other)
  Sender: FDA-Public Use
  Company Number: US-PFIZER INC-2016167215

PATIENT
  Sex: Male

DRUGS (1)
  1. PHENYTOIN SODIUM. [Suspect]
     Active Substance: PHENYTOIN SODIUM
     Indication: SEIZURE
     Dosage: 200 MG, 2X/DAY (200 MG CAPSULE ORALLY, 200 MG IN MORNING 200MG AT NIGHT)
     Route: 048

REACTIONS (2)
  - Seizure [Unknown]
  - Anticonvulsant drug level increased [Unknown]
